FAERS Safety Report 10697244 (Version 1)
Quarter: 2015Q1

REPORT INFORMATION
  Report Type: Spontaneous
  Country: US (occurrence: None)
  Receive Date: 20150107
  Receipt Date: 20150107
  Transmission Date: 20150721
  Serious: No
  Sender: FDA-Public Use
  Company Number: None

PATIENT
  Age: 58 Year
  Sex: Female

DRUGS (1)
  1. GLEEVEC [Suspect]
     Active Substance: IMATINIB MESYLATE
     Indication: LEUKOPENIA
     Route: 048
     Dates: start: 20131217, end: 20141231

REACTIONS (4)
  - Bone pain [None]
  - Pain [None]
  - Myalgia [None]
  - Colitis [None]

NARRATIVE: CASE EVENT DATE: 20141231
